FAERS Safety Report 25089004 (Version 2)
Quarter: 2025Q2

REPORT INFORMATION
  Report Type: Spontaneous
  Country: DE (occurrence: DE)
  Receive Date: 20250318
  Receipt Date: 20250404
  Transmission Date: 20250716
  Serious: Yes (Hospitalization, Other)
  Sender: PFIZER
  Company Number: DE-009507513-2259890

PATIENT
  Age: 62 Year
  Sex: Female

DRUGS (5)
  1. EPIRUBICIN HYDROCHLORIDE [Suspect]
     Active Substance: EPIRUBICIN HYDROCHLORIDE
     Dosage: 90 MG/M2, EVERY 3 WEEKS
  2. PEMBROLIZUMAB [Suspect]
     Active Substance: PEMBROLIZUMAB
     Indication: Triple negative breast cancer
     Dosage: 200 MG, EVERY 3 WEEKS
  3. CARBOPLATIN [Suspect]
     Active Substance: CARBOPLATIN
     Dosage: AUC 1.5, WEEKLY
  4. PACLITAXEL [Suspect]
     Active Substance: PACLITAXEL
     Dosage: 80 MG/M2, WEEKLY
  5. CYCLOPHOSPHAMIDE [Suspect]
     Active Substance: CYCLOPHOSPHAMIDE
     Dosage: 600 MG/M2, EVERY 3 WEEKS

REACTIONS (14)
  - Mental disorder [Unknown]
  - General physical health deterioration [Unknown]
  - Chest pain [Unknown]
  - Initial insomnia [Unknown]
  - Panic attack [Unknown]
  - Dyspnoea [Unknown]
  - Acute stress disorder [Unknown]
  - Sleep disorder [Unknown]
  - Mastectomy [Unknown]
  - Anxiety [Unknown]
  - Panic disorder [Unknown]
  - Cancer pain [Unknown]
  - Pain in extremity [Unknown]
  - Depression [Unknown]
